FAERS Safety Report 8143107-8 (Version None)
Quarter: 2012Q1

REPORT INFORMATION
  Report Type: 
  Country: None (occurrence: None)
  Receive Date: 20120217
  Receipt Date: 20120207
  Transmission Date: 20120608
  Serious: Yes (Other)
  Sender: FDA-Public Use
  Company Number: BR-AMGEN-BRASP2012009036

PATIENT
  Age: 64 Year
  Sex: Female
  Weight: 82.993 kg

DRUGS (3)
  1. ENBREL [Suspect]
     Indication: RHEUMATOID ARTHRITIS
     Dosage: 50 MG, WEEKLY
     Route: 058
     Dates: start: 20060715
  2. METYLDOPA [Concomitant]
     Indication: HYPERTENSION
     Dosage: UNK
  3. GLUCOSAMINE SULFATE [Concomitant]
     Dosage: UNK MG, UNK

REACTIONS (5)
  - GAIT DISTURBANCE [None]
  - RHEUMATOID ARTHRITIS [None]
  - ARTHROPATHY [None]
  - DRUG INEFFECTIVE [None]
  - ARTHRALGIA [None]
